FAERS Safety Report 19129568 (Version 7)
Quarter: 2021Q3

REPORT INFORMATION
  Report Type: Spontaneous
  Country: PL (occurrence: PL)
  Receive Date: 20210413
  Receipt Date: 20210728
  Transmission Date: 20211014
  Serious: Yes (Hospitalization, Other)
  Sender: FDA-Public Use
  Company Number: PL-ASTRAZENECA-2021A265010

PATIENT
  Age: 62 Year
  Sex: Male

DRUGS (25)
  1. RAMIPRIL. [Suspect]
     Active Substance: RAMIPRIL
     Indication: CARDIAC FAILURE
     Dosage: 10.0MG UNKNOWN
     Route: 065
  2. ACETYLSALICYLIC ACID [Suspect]
     Active Substance: ASPIRIN
     Indication: HYPERTENSION
     Dosage: ORAL SOLUTION75.0MG UNKNOWN
     Route: 065
  3. AMLODIPINE [Suspect]
     Active Substance: AMLODIPINE BESYLATE
     Indication: PRODUCT USED FOR UNKNOWN INDICATION
     Dosage: 10/10 MG10.0MG UNKNOWN
     Route: 065
  4. PANTOPRAZOLE [Suspect]
     Active Substance: PANTOPRAZOLE
     Indication: HELICOBACTER GASTRITIS
     Dosage: 80.0MG UNKNOWN
     Route: 065
  5. AMLODIPINE/RAMIPRIL [Suspect]
     Active Substance: AMLODIPINE\RAMIPRIL
     Indication: CARDIAC FAILURE
     Dosage: 10/10 MG10.0MG UNKNOWN
     Route: 065
  6. ESOMEPRAZOLE. [Suspect]
     Active Substance: ESOMEPRAZOLE MAGNESIUM
     Indication: ANTIPLATELET THERAPY
     Dosage: 20.0MG UNKNOWN
     Route: 065
  7. ACETYLSALICYLIC ACID [Suspect]
     Active Substance: ASPIRIN
     Indication: CAROTID ARTERIOSCLEROSIS
     Dosage: ORAL SOLUTION75.0MG UNKNOWN
     Route: 065
  8. ACETYLSALICYLIC ACID [Suspect]
     Active Substance: ASPIRIN
     Indication: CORONARY ARTERY BYPASS
     Dosage: ORAL SOLUTION75.0MG UNKNOWN
     Route: 065
  9. BISOPROLOL [Suspect]
     Active Substance: BISOPROLOL
     Indication: CORONARY ARTERY DISEASE
     Dosage: 7.5MG UNKNOWN
     Route: 065
  10. ACETYLSALICYLIC ACID [Suspect]
     Active Substance: ASPIRIN
     Indication: POSTOPERATIVE CARE
     Dosage: ORAL SOLUTION75.0MG UNKNOWN
     Route: 065
  11. ESOMEPRAZOLE. [Suspect]
     Active Substance: ESOMEPRAZOLE MAGNESIUM
     Indication: RENAL FAILURE
     Dosage: 20.0MG UNKNOWN
     Route: 065
  12. ESOMEPRAZOLE. [Suspect]
     Active Substance: ESOMEPRAZOLE MAGNESIUM
     Indication: RENAL FAILURE
     Dosage: 20.0MG UNKNOWN
     Route: 065
  13. ACETYLSALICYLIC ACID [Suspect]
     Active Substance: ASPIRIN
     Indication: POSTOPERATIVE CARE
     Dosage: ORAL SOLUTION75.0MG UNKNOWN
     Route: 065
  14. PANTOPRAZOLE [Suspect]
     Active Substance: PANTOPRAZOLE
     Indication: HELICOBACTER GASTRITIS
     Dosage: 80.0MG UNKNOWN
     Route: 065
  15. CLOPIDOGREL [Concomitant]
     Active Substance: CLOPIDOGREL BISULFATE
     Indication: POSTOPERATIVE CARE
     Dosage: UNK75.0MG UNKNOWN
     Route: 065
  16. RAMIPRIL. [Suspect]
     Active Substance: RAMIPRIL
     Indication: CORONARY ARTERY DISEASE
     Dosage: 10.0MG UNKNOWN
     Route: 065
  17. BISOPROLOL [Suspect]
     Active Substance: BISOPROLOL
     Indication: CARDIAC FAILURE
     Dosage: 7.5MG UNKNOWN
     Route: 065
  18. PANTOPRAZOLE [Suspect]
     Active Substance: PANTOPRAZOLE
     Indication: HELICOBACTER GASTRITIS
     Dosage: 40.0MG UNKNOWN
     Route: 065
  19. ROSUVASTATIN CALCIUM. [Suspect]
     Active Substance: ROSUVASTATIN CALCIUM
     Indication: CAROTID ARTERIOSCLEROSIS
     Dosage: 40.0MG UNKNOWN
     Route: 065
  20. ROSUVASTATIN CALCIUM. [Suspect]
     Active Substance: ROSUVASTATIN CALCIUM
     Indication: HYPERTENSION
     Dosage: 40.0MG UNKNOWN
     Route: 065
  21. ROSUVASTATIN CALCIUM. [Suspect]
     Active Substance: ROSUVASTATIN CALCIUM
     Indication: DISEASE RISK FACTOR
     Dosage: 40.0MG UNKNOWN
     Route: 065
  22. ACETYLSALICYLIC ACID [Suspect]
     Active Substance: ASPIRIN
     Indication: CAROTID ARTERIOSCLEROSIS
     Dosage: ORAL SOLUTION75.0MG UNKNOWN
     Route: 065
  23. AMLODIPINE/RAMIPRIL [Suspect]
     Active Substance: AMLODIPINE\RAMIPRIL
     Indication: CORONARY ARTERY DISEASE
     Dosage: 10/10 MG10.0MG UNKNOWN
     Route: 065
  24. CLOPIDOGREL [Concomitant]
     Active Substance: CLOPIDOGREL BISULFATE
     Indication: POSTOPERATIVE CARE
     Dosage: UNK75.0MG UNKNOWN
     Route: 065
  25. PANTOPRAZOLE [Suspect]
     Active Substance: PANTOPRAZOLE
     Indication: HELICOBACTER GASTRITIS
     Dosage: 40.0MG UNKNOWN
     Route: 065

REACTIONS (29)
  - Rales [Unknown]
  - Asthenia [Unknown]
  - Left ventricular hypertrophy [Unknown]
  - Helicobacter gastritis [Unknown]
  - Pericardial effusion [Unknown]
  - Chronic kidney disease [Unknown]
  - Hepatojugular reflux [Unknown]
  - Ventricular hypokinesia [Unknown]
  - Dyspnoea at rest [Unknown]
  - Angiopathy [Unknown]
  - Hyperlipidaemia [Unknown]
  - Diastolic dysfunction [Unknown]
  - Systolic dysfunction [Unknown]
  - Carotid artery stenosis [Unknown]
  - Oedema peripheral [Unknown]
  - Chronic kidney disease [Unknown]
  - Aortic valve incompetence [Unknown]
  - Acute kidney injury [Unknown]
  - Tricuspid valve incompetence [Unknown]
  - Electrocardiogram Q wave abnormal [Unknown]
  - Ejection fraction decreased [Unknown]
  - Mitral valve incompetence [Unknown]
  - Palpitations [Unknown]
  - Carotid arteriosclerosis [Unknown]
  - Coronary artery disease [Unknown]
  - Anaemia macrocytic [Unknown]
  - Acute myocardial infarction [Unknown]
  - Cardiac failure [Unknown]
  - Occult blood [Unknown]

NARRATIVE: CASE EVENT DATE: 20190918
